FAERS Safety Report 25137718 (Version 1)
Quarter: 2025Q1

REPORT INFORMATION
  Report Type: Spontaneous
  Country: CN (occurrence: CN)
  Receive Date: 20250329
  Receipt Date: 20250329
  Transmission Date: 20250409
  Serious: Yes (Other)
  Sender: MACLEODS
  Company Number: CN-MACLEODS PHARMA-MAC2025052307

PATIENT

DRUGS (2)
  1. METFORMIN [Suspect]
     Active Substance: METFORMIN HYDROCHLORIDE
     Indication: Type 2 diabetes mellitus
     Route: 065
  2. FAMOTIDINE [Concomitant]
     Active Substance: FAMOTIDINE
     Indication: Gastritis
     Route: 065

REACTIONS (4)
  - Subacute combined cord degeneration [Recovering/Resolving]
  - Cognitive disorder [Unknown]
  - Ataxia [Recovering/Resolving]
  - Vitamin B12 deficiency [Recovering/Resolving]
